FAERS Safety Report 6470301-4 (Version None)
Quarter: 2009Q4

REPORT INFORMATION
  Report Type: 
  Country: None (occurrence: None)
  Receive Date: 20091201
  Receipt Date: 20091117
  Transmission Date: 20100525
  Serious: Yes (Life-Threatening, Other)
  Sender: FDA-Public Use
  Company Number: 2009AL007395

PATIENT
  Age: 50 Year
  Sex: Male

DRUGS (1)
  1. DICLOFENAC SODIUM [Suspect]
     Indication: MUSCLE INJURY

REACTIONS (10)
  - DISSEMINATED INTRAVASCULAR COAGULATION [None]
  - GASTRIC ULCER [None]
  - GASTROINTESTINAL NECROSIS [None]
  - NECROSIS ISCHAEMIC [None]
  - PERITONITIS [None]
  - POST PROCEDURAL BILE LEAK [None]
  - POST PROCEDURAL COMPLICATION [None]
  - POST PROCEDURAL HAEMORRHAGE [None]
  - SEPSIS [None]
  - THROMBOSIS [None]
